FAERS Safety Report 5220723-4 (Version None)
Quarter: 2007Q1

REPORT INFORMATION
  Report Type: 
  Country: None (occurrence: None)
  Receive Date: 20070126
  Receipt Date: 20070118
  Transmission Date: 20070707
  Serious: Yes (Hospitalization)
  Sender: FDA-Public Use
  Company Number: IT-ROCHE-466113

PATIENT
  Age: 47 Year
  Sex: Male

DRUGS (3)
  1. PEGASYS [Suspect]
     Indication: HEPATITIS B
     Dosage: FORM REPORTED AS VIAL.
     Route: 058
     Dates: start: 20060617, end: 20060811
  2. PEGASYS [Suspect]
     Dosage: FORM REPORTED AS VIAL, STRENGTH REPORTED AS 135.
     Route: 058
     Dates: start: 20060812, end: 20060909
  3. NIMESULIDE [Concomitant]
     Indication: HEADACHE
     Dates: start: 20060617

REACTIONS (12)
  - ABDOMINAL PAIN UPPER [None]
  - BACK PAIN [None]
  - BINOCULAR EYE MOVEMENT DISORDER [None]
  - CONVULSION [None]
  - HEADACHE [None]
  - HYPERHIDROSIS [None]
  - INSOMNIA [None]
  - MALAISE [None]
  - MYOCLONUS [None]
  - PALLOR [None]
  - PLATELET COUNT DECREASED [None]
  - PYREXIA [None]
